FAERS Safety Report 9946363 (Version 1)
Quarter: 2014Q1

REPORT INFORMATION
  Report Type: Spontaneous
  Country: JP (occurrence: JP)
  Receive Date: 20140303
  Receipt Date: 20140303
  Transmission Date: 20141002
  Serious: Yes (Other)
  Sender: FDA-Public Use
  Company Number: JP-TAKEDA-2014TJP002018

PATIENT
  Sex: Male

DRUGS (2)
  1. NESINA TABLETS 25MG [Suspect]
     Dosage: UNK
     Route: 048
  2. NESINA TABLETS 25MG [Suspect]
     Dosage: UNK, BID
     Route: 048

REACTIONS (2)
  - Haematuria [Recovered/Resolved]
  - Urethral obstruction [Unknown]
